FAERS Safety Report 11950221 (Version 1)
Quarter: 2016Q1

REPORT INFORMATION
  Report Type: Spontaneous
  Country: US (occurrence: None)
  Receive Date: 20160122
  Receipt Date: 20160122
  Transmission Date: 20160526
  Serious: No
  Sender: FDA-Public Use
  Company Number: None

PATIENT
  Age: 54 Year
  Sex: Male

DRUGS (1)
  1. SUTENT [Suspect]
     Active Substance: SUNITINIB MALATE
     Indication: RENAL CANCER
     Dosage: 1 CAP QD D1-28 AND THEN 2 WEEK OFF
     Route: 048
     Dates: start: 20141231

REACTIONS (1)
  - Diarrhoea [None]

NARRATIVE: CASE EVENT DATE: 2015
